FAERS Safety Report 18410368 (Version 1)
Quarter: 2020Q4

REPORT INFORMATION
  Report Type: Spontaneous
  Country: US (occurrence: US)
  Receive Date: 20201021
  Receipt Date: 20201021
  Transmission Date: 20210114
  Serious: No
  Sender: FDA-Public Use
  Company Number: US-TEVA-2020-US-1840362

PATIENT
  Age: 38 Year
  Sex: Female

DRUGS (1)
  1. CEFACLOR. [Suspect]
     Active Substance: CEFACLOR
     Route: 065

REACTIONS (1)
  - Hypersensitivity [Unknown]
